FAERS Safety Report 11374339 (Version 1)
Quarter: 2015Q3

REPORT INFORMATION
  Report Type: Spontaneous
  Country: US (occurrence: None)
  Receive Date: 20150812
  Receipt Date: 20150812
  Transmission Date: 20151125
  Serious: Yes (Hospitalization)
  Sender: FDA-Public Use
  Company Number: None

PATIENT
  Age: 85 Year
  Sex: Male
  Weight: 89.4 kg

DRUGS (1)
  1. CLOPIDOGREL [Suspect]
     Active Substance: CLOPIDOGREL BISULFATE
     Indication: CORONARY ARTERIAL STENT INSERTION
     Dates: start: 20150105

REACTIONS (6)
  - Anaemia [None]
  - Gastric haemorrhage [None]
  - Haematochezia [None]
  - Haemorrhage [None]
  - Painful defaecation [None]
  - Increased appetite [None]

NARRATIVE: CASE EVENT DATE: 20150624
